FAERS Safety Report 10672362 (Version 1)
Quarter: 2014Q4

REPORT INFORMATION
  Report Type: Spontaneous
  Country: US (occurrence: None)
  Receive Date: 20141222
  Receipt Date: 20141222
  Transmission Date: 20150529
  Serious: Yes (Hospitalization)
  Sender: FDA-Public Use
  Company Number: None

PATIENT
  Age: 66 Year
  Sex: Male
  Weight: 52 kg

DRUGS (6)
  1. RITUXIMAB [Suspect]
     Active Substance: RITUXIMAB
     Dates: end: 20141204
  2. METFORMIN [Concomitant]
     Active Substance: METFORMIN HYDROCHLORIDE
  3. METHOTREXATE [Suspect]
     Active Substance: METHOTREXATE
     Dates: end: 20141206
  4. VINCRISTINE SULFATE. [Suspect]
     Active Substance: VINCRISTINE SULFATE
     Dates: end: 20141206
  5. PROCARBAZINE [Suspect]
     Active Substance: PROCARBAZINE
     Dates: end: 20141206
  6. KEPPRA [Concomitant]
     Active Substance: LEVETIRACETAM

REACTIONS (6)
  - Hypotension [None]
  - Melaena [None]
  - Decreased appetite [None]
  - Thrombosis [None]
  - Anaemia [None]
  - Liver function test abnormal [None]

NARRATIVE: CASE EVENT DATE: 20141218
